FAERS Safety Report 8572684-8 (Version None)
Quarter: 2012Q2

REPORT INFORMATION
  Report Type: 
  Country: None (occurrence: None)
  Receive Date: 20120420
  Receipt Date: 20110711
  Transmission Date: 20120825
  Serious: Yes (Hospitalization)
  Sender: FDA-Public Use
  Company Number: WAES 1107USA01617

PATIENT
  Age: 53 Year
  Sex: Female

DRUGS (12)
  1. SINGULAIR [Suspect]
     Indication: ASTHMA
     Dosage: 10 MG/DAILY/PO
     Route: 048
     Dates: start: 20070101, end: 20070101
  2. SINGULAIR [Suspect]
     Indication: HYPERSENSITIVITY
     Dosage: 10 MG/DAILY/PO
     Route: 048
     Dates: start: 20070101, end: 20070101
  3. FLONASE [Concomitant]
  4. IPRATROPIUM BROMIDE [Concomitant]
  5. ACCOLATE [Concomitant]
  6. FLOVENT [Concomitant]
  7. PROVENTIL-HFA [Concomitant]
  8. HYDROCHLOROTHIAZIDE [Concomitant]
  9. LISINOPRIL [Concomitant]
  10. LAMICTAL [Concomitant]
  11. CELEBREX [Concomitant]
  12. ACIPHEX [Concomitant]

REACTIONS (3)
  - PNEUMONIA [None]
  - DRUG HYPERSENSITIVITY [None]
  - GENERAL SYMPTOM [None]
